FAERS Safety Report 6811271-6 (Version None)
Quarter: 2010Q2

REPORT INFORMATION
  Report Type: 
  Country: None (occurrence: None)
  Receive Date: 20100630
  Receipt Date: 20091106
  Transmission Date: 20101027
  Serious: No
  Sender: FDA-Public Use
  Company Number: US-AMGEN-KDL365109

PATIENT
  Sex: Male
  Weight: 62.2 kg

DRUGS (9)
  1. PROCRIT [Suspect]
     Indication: ANAEMIA
     Route: 058
     Dates: start: 20081204, end: 20090818
  2. OXYCONTIN [Concomitant]
     Route: 048
  3. MORPHINE SULFATE [Concomitant]
     Route: 048
  4. UNSPECIFIED MEDICATION [Concomitant]
  5. PRILOSEC [Concomitant]
  6. INTERFERON [Concomitant]
  7. RIBAVIRIN [Concomitant]
     Route: 048
     Dates: start: 20081101
  8. BRIMONIDINE [Concomitant]
  9. PEGYLATED INTERFERON ALFA-2B [Concomitant]

REACTIONS (2)
  - REFRACTORY ANAEMIA [None]
  - THERAPEUTIC RESPONSE DECREASED [None]
